FAERS Safety Report 9009324 (Version 1)
Quarter: 2013Q1

REPORT INFORMATION
  Report Type: Spontaneous
  Country: TW (occurrence: TW)
  Receive Date: 20130111
  Receipt Date: 20130111
  Transmission Date: 20140127
  Serious: Yes (Other)
  Sender: FDA-Public Use
  Company Number: TW-PFIZER INC-2013009237

PATIENT
  Age: 65 Year
  Sex: Male

DRUGS (1)
  1. CYTARABINE [Suspect]
     Indication: ACUTE MYELOID LEUKAEMIA
     Dosage: 100 MG/M2, (CONTINOUS INFUSION)
     Dates: start: 200908

REACTIONS (11)
  - Pyrexia [Unknown]
  - Chills [Unknown]
  - Pain in extremity [Unknown]
  - Aeromona infection [None]
  - Coma [None]
  - Metabolic acidosis [None]
  - Respiratory distress [None]
  - Urine output decreased [None]
  - Renal impairment [None]
  - Neutropenia [None]
  - Thrombocytopenia [None]
